FAERS Safety Report 22138470 (Version 1)
Quarter: 2023Q1

REPORT INFORMATION
  Report Type: Report from Study
  Country: US (occurrence: US)
  Receive Date: 20230326
  Receipt Date: 20230326
  Transmission Date: 20230418
  Serious: Yes (Other)
  Sender: FDA-Public Use
  Company Number: US-UCBSA-2023015343

PATIENT
  Age: 13 Year
  Sex: Female

DRUGS (1)
  1. FINTEPLA [Suspect]
     Active Substance: FENFLURAMINE
     Indication: Product used for unknown indication
     Dosage: 3.8 MILLILITER, 2X/DAY (BID)

REACTIONS (1)
  - Atonic seizures [Not Recovered/Not Resolved]

NARRATIVE: CASE EVENT DATE: 20220908
